FAERS Safety Report 4918333-9 (Version None)
Quarter: 2006Q1

REPORT INFORMATION
  Report Type: 
  Country: None (occurrence: None)
  Receive Date: 20060217
  Receipt Date: 20060217
  Transmission Date: 20060701
  Serious: Yes (Other)
  Sender: FDA-Public Use
  Company Number: None

PATIENT
  Sex: Female

DRUGS (1)
  1. SPRINTEC [Suspect]
     Indication: CONTRACEPTION
     Dosage: 1 PO DAILY
     Route: 048

REACTIONS (4)
  - HOT FLUSH [None]
  - INSOMNIA [None]
  - MOOD SWINGS [None]
  - WEIGHT INCREASED [None]
